FAERS Safety Report 13554023 (Version 1)
Quarter: 2017Q2

REPORT INFORMATION
  Report Type: Spontaneous
  Country: IT (occurrence: IT)
  Receive Date: 20170517
  Receipt Date: 20170517
  Transmission Date: 20170830
  Serious: Yes (Life-Threatening, Hospitalization, Other)
  Sender: FDA-Public Use
  Company Number: IT-MYLANLABS-2017M1028936

PATIENT

DRUGS (4)
  1. LEVOTHYROXINE. [Suspect]
     Active Substance: LEVOTHYROXINE
     Indication: DECREASED APPETITE
     Dosage: 25 MICROG FOR MONTHS
     Route: 065
  2. CAFFEINE. [Concomitant]
     Active Substance: CAFFEINE
     Indication: DECREASED APPETITE
     Dosage: 180 MG FOR MONTHS
     Route: 065
  3. SPIRONOLACTONE. [Concomitant]
     Active Substance: SPIRONOLACTONE
     Indication: DECREASED APPETITE
     Dosage: 30 MG FOR MONTHS
     Route: 065
  4. OXEDRINE [Concomitant]
     Active Substance: OXEDRINE
     Indication: DECREASED APPETITE
     Dosage: 20 MG FOR MONTHS
     Route: 065

REACTIONS (2)
  - Hyperthyroidism [Recovered/Resolved]
  - Product use in unapproved indication [Recovered/Resolved]
